FAERS Safety Report 6377793-X (Version None)
Quarter: 2009Q3

REPORT INFORMATION
  Report Type: 
  Country: None (occurrence: None)
  Receive Date: 20090925
  Receipt Date: 20090915
  Transmission Date: 20100115
  Serious: Yes (Death)
  Sender: FDA-Public Use
  Company Number: JP-PFIZER INC-2009272538

PATIENT
  Age: 45 Year

DRUGS (2)
  1. ZOLOFT [Suspect]
     Route: 048
     Dates: start: 20090804
  2. AMLODIPINE [Concomitant]
     Route: 048

REACTIONS (4)
  - CARDIAC ARREST [None]
  - ECZEMA [None]
  - RESPIRATION ABNORMAL [None]
  - RESPIRATORY ARREST [None]
